FAERS Safety Report 7970933-8 (Version None)
Quarter: 2011Q4

REPORT INFORMATION
  Report Type: 
  Country: None (occurrence: None)
  Receive Date: 20111212
  Receipt Date: 20111112
  Transmission Date: 20120403
  Serious: No
  Sender: FDA-Public Use
  Company Number: DE-BAYER-2011-111677

PATIENT

DRUGS (1)
  1. FINACEA [Suspect]
     Dosage: UNK

REACTIONS (2)
  - THERMAL BURN [None]
  - PRURITUS [None]
